FAERS Safety Report 4335398-6 (Version None)
Quarter: 2004Q2

REPORT INFORMATION
  Report Type: 
  Country: None (occurrence: None)
  Receive Date: 20040409
  Receipt Date: 20030905
  Transmission Date: 20050107
  Serious: Yes (Other)
  Sender: FDA-Public Use
  Company Number: FR-BRISTOL-MYERS SQUIBB COMPANY-12375184

PATIENT
  Age: 41 Year
  Sex: Male
  Weight: 70 kg

DRUGS (9)
  1. ATAZANAVIR [Suspect]
     Indication: HIV INFECTION
     Dosage: INTERRUPTED ON 31-OCT-2002.
     Dates: start: 20020301
  2. VIDEX [Concomitant]
     Indication: HIV INFECTION
     Route: 048
     Dates: start: 20020314, end: 20021003
  3. VIREAD [Concomitant]
     Indication: HIV INFECTION
     Route: 048
     Dates: start: 20010501, end: 20021031
  4. EPIVIR [Concomitant]
     Indication: HIV INFECTION
     Route: 048
     Dates: start: 20020314, end: 20021031
  5. BACTRIM DS [Concomitant]
     Indication: INFECTION PROPHYLAXIS
     Route: 048
     Dates: start: 20021210
  6. TRIATEC [Concomitant]
  7. ENFUVIRTIDE [Concomitant]
     Dates: start: 20020301
  8. ZIDOVUDINE [Concomitant]
  9. ZIAGEN [Concomitant]

REACTIONS (6)
  - DIABETES MELLITUS [None]
  - GLOMERULONEPHRITIS PROLIFERATIVE [None]
  - LIPODYSTROPHY ACQUIRED [None]
  - RENAL INTERSTITIAL FIBROSIS [None]
  - RENAL NECROSIS [None]
  - RENAL TUBULAR NECROSIS [None]
